FAERS Safety Report 23302727 (Version 1)
Quarter: 2023Q4

REPORT INFORMATION
  Report Type: Spontaneous
  Country: US (occurrence: None)
  Receive Date: 20231215
  Receipt Date: 20231215
  Transmission Date: 20240110
  Serious: Yes (Death, Hospitalization)
  Sender: FDA-Public Use
  Company Number: 2023A285557

PATIENT
  Age: 23 Year
  Sex: Female

DRUGS (8)
  1. QUETIAPINE [Suspect]
     Active Substance: QUETIAPINE
     Route: 051
  2. LAMOTRIGINE [Suspect]
     Active Substance: LAMOTRIGINE
     Route: 051
  3. HYDROXYCHLOROQUINE [Suspect]
     Active Substance: HYDROXYCHLOROQUINE
     Route: 051
  4. METHOTREXATE [Suspect]
     Active Substance: METHOTREXATE
     Route: 051
  5. INSULIN DETEMIR [Suspect]
     Active Substance: INSULIN DETEMIR
     Route: 051
  6. INSULIN LISPRO [Suspect]
     Active Substance: INSULIN LISPRO
     Route: 051
  7. LORAZEPAM [Suspect]
     Active Substance: LORAZEPAM
     Route: 051
  8. LEVOTHYROXINE [Suspect]
     Active Substance: LEVOTHYROXINE
     Route: 051

REACTIONS (2)
  - Toxicity to various agents [Fatal]
  - Completed suicide [Fatal]
